FAERS Safety Report 22826514 (Version 3)
Quarter: 2024Q1

REPORT INFORMATION
  Report Type: Spontaneous
  Country: FR (occurrence: FR)
  Receive Date: 20230816
  Receipt Date: 20240108
  Transmission Date: 20240409
  Serious: Yes (Other)
  Sender: FDA-Public Use
  Company Number: None

PATIENT
  Age: 47 Year
  Sex: Male
  Weight: 111 kg

DRUGS (4)
  1. MIRTAZAPINE [Suspect]
     Active Substance: MIRTAZAPINE
     Indication: Mixed anxiety and depressive disorder
     Dosage: 15 MILLIGRAM, QD
     Route: 048
     Dates: start: 20230104, end: 20230403
  2. VENLAFAXINE [Suspect]
     Active Substance: VENLAFAXINE HYDROCHLORIDE
     Indication: Mixed anxiety and depressive disorder
     Dosage: 75 MILLIGRAM, QD
     Route: 048
     Dates: start: 20230322
  3. BROMAZEPAM [Suspect]
     Active Substance: BROMAZEPAM
     Indication: Mixed anxiety and depressive disorder
     Dosage: 6 MILLIGRAM
     Route: 048
     Dates: start: 20230322
  4. ETIFOXINE [Suspect]
     Active Substance: ETIFOXINE
     Indication: Mixed anxiety and depressive disorder
     Dosage: 3 DOSAGE FORM, QD
     Route: 048
     Dates: start: 20220706

REACTIONS (1)
  - Gynaecomastia [Not Recovered/Not Resolved]

NARRATIVE: CASE EVENT DATE: 20230201
